FAERS Safety Report 5254563-7 (Version None)
Quarter: 2007Q1

REPORT INFORMATION
  Report Type: 
  Country: None (occurrence: None)
  Receive Date: 20070302
  Receipt Date: 20070227
  Transmission Date: 20070707
  Serious: Yes (Other)
  Sender: FDA-Public Use
  Company Number: GB-MERCK-0703GBR00002

PATIENT
  Age: 10 Year
  Sex: Male

DRUGS (5)
  1. SINGULAIR [Suspect]
     Indication: ASTHMA
     Route: 065
     Dates: start: 20050923, end: 20051023
  2. SINGULAIR [Suspect]
     Route: 048
     Dates: start: 20061115, end: 20070213
  3. FLUTICASONE PROPIONATE [Concomitant]
     Indication: ASTHMA
     Dates: start: 20051201
  4. ALBUTEROL [Concomitant]
     Indication: ASTHMA
     Dates: start: 20030201
  5. SALMETEROL [Concomitant]
     Indication: ASTHMA
     Dates: start: 20051201

REACTIONS (5)
  - AGGRESSION [None]
  - HEADACHE [None]
  - IRRITABILITY [None]
  - THIRST [None]
  - VERTIGO [None]
